FAERS Safety Report 19559186 (Version 1)
Quarter: 2021Q3

REPORT INFORMATION
  Report Type: Spontaneous
  Country: US (occurrence: US)
  Receive Date: 20210715
  Receipt Date: 20210715
  Transmission Date: 20211014
  Serious: Yes (Hospitalization)
  Sender: FDA-Public Use
  Company Number: None

PATIENT
  Age: 40 Year
  Sex: Female

DRUGS (10)
  1. ATIVAN [Concomitant]
     Active Substance: LORAZEPAM
  2. AMBRISENTAN [Suspect]
     Active Substance: AMBRISENTAN
     Indication: PULMONARY ARTERIAL HYPERTENSION
     Route: 048
     Dates: start: 20190911
  3. GABAPENTIN. [Concomitant]
     Active Substance: GABAPENTIN
  4. ROPINIROLE. [Concomitant]
     Active Substance: ROPINIROLE
  5. OXYCODONE [Concomitant]
     Active Substance: OXYCODONE
  6. CYMBALTA [Concomitant]
     Active Substance: DULOXETINE HYDROCHLORIDE
  7. REMODULIN [Concomitant]
     Active Substance: TREPROSTINIL
  8. PAXIL [Concomitant]
     Active Substance: PAROXETINE HYDROCHLORIDE
  9. CIPROFLOXACIN. [Concomitant]
     Active Substance: CIPROFLOXACIN
  10. TADALAFIL. [Concomitant]
     Active Substance: TADALAFIL

REACTIONS (5)
  - Device breakage [None]
  - Exposure via skin contact [None]
  - Accidental exposure to product [None]
  - Device leakage [None]
  - Device related infection [None]

NARRATIVE: CASE EVENT DATE: 20210615
